FAERS Safety Report 17310037 (Version 1)
Quarter: 2020Q1

REPORT INFORMATION
  Report Type: Report from Study
  Country: CN (occurrence: CN)
  Receive Date: 20200123
  Receipt Date: 20200123
  Transmission Date: 20200409
  Serious: Yes (Other)
  Sender: FDA-Public Use
  Company Number: CN-TAKEDA-2020TUS004522

PATIENT

DRUGS (3)
  1. DEXAMETHASONE. [Suspect]
     Active Substance: DEXAMETHASONE
     Indication: PLASMA CELL MYELOMA
     Dosage: UNK
     Route: 041
  2. BORTEZOMIB. [Suspect]
     Active Substance: BORTEZOMIB
     Indication: PLASMA CELL MYELOMA
     Dosage: 1.3 MILLIGRAM/SQ. METER
     Route: 058
  3. CYCLOPHOSPHAMIDE. [Suspect]
     Active Substance: CYCLOPHOSPHAMIDE
     Indication: PLASMA CELL MYELOMA
     Dosage: UNK
     Route: 040

REACTIONS (16)
  - Diarrhoea [Recovering/Resolving]
  - Constipation [Recovering/Resolving]
  - Urinary tract infection [Recovered/Resolved]
  - Neuropathy peripheral [Recovering/Resolving]
  - Vomiting [Recovering/Resolving]
  - Nausea [Recovering/Resolving]
  - Anaemia [Recovered/Resolved]
  - Alopecia [Recovered/Resolved]
  - Abdominal distension [Recovering/Resolving]
  - Pneumonia [Recovered/Resolved]
  - Intestinal obstruction [Recovering/Resolving]
  - Rash [Recovered/Resolved]
  - Enterobacter infection [Recovered/Resolved]
  - Oedema [Recovered/Resolved]
  - Herpes zoster [Recovering/Resolving]
  - Asthenia [Recovered/Resolved]
